FAERS Safety Report 7577176-0 (Version None)
Quarter: 2011Q2

REPORT INFORMATION
  Report Type: 
  Country: None (occurrence: None)
  Receive Date: 20110628
  Receipt Date: 20110608
  Transmission Date: 20111010
  Serious: Yes (Other)
  Sender: FDA-Public Use
  Company Number: US-BAYER-201035538NA

PATIENT
  Age: 20 Year
  Sex: Female
  Weight: 50 kg

DRUGS (5)
  1. YAZ [Suspect]
     Indication: ORAL CONTRACEPTION
     Dosage: UNK UNK, UNK
     Route: 048
     Dates: start: 20070901, end: 20071101
  2. YASMIN [Suspect]
     Indication: ORAL CONTRACEPTION
     Dosage: UNK UNK, UNK
     Route: 048
     Dates: start: 20081001, end: 20081201
  3. YAZ [Suspect]
     Indication: MENSTRUATION IRREGULAR
  4. TRI-SPRINTEC [Concomitant]
     Dosage: UNK
     Dates: start: 20080901
  5. YASMIN [Suspect]
     Indication: MENSTRUATION IRREGULAR

REACTIONS (7)
  - CHEST PAIN [None]
  - DYSPNOEA [None]
  - MENTAL DISORDER [None]
  - EMOTIONAL DISORDER [None]
  - MITRAL VALVE PROLAPSE [None]
  - DEEP VEIN THROMBOSIS [None]
  - CHEST DISCOMFORT [None]
